FAERS Safety Report 15848980 (Version 3)
Quarter: 2019Q2

REPORT INFORMATION
  Report Type: Spontaneous
  Country: FR (occurrence: FR)
  Receive Date: 20190121
  Receipt Date: 20190422
  Transmission Date: 20190711
  Serious: Yes (Other)
  Sender: FDA-Public Use
  Company Number: FR-PFIZER INC-2019023064

PATIENT
  Age: 44 Year
  Sex: Male

DRUGS (4)
  1. IBUPROFEN. [Suspect]
     Active Substance: IBUPROFEN
     Indication: ARTHRALGIA
     Dosage: 1 DF, 1X/DAY
     Route: 061
     Dates: start: 2016, end: 2016
  2. KETUM [Suspect]
     Active Substance: KETOPROFEN
     Indication: ARTHRALGIA
     Dosage: 100 MG, SINGLE
     Route: 048
     Dates: start: 2016, end: 2016
  3. VOLTARENE (DICLOFENAC SODIUM) [Suspect]
     Active Substance: DICLOFENAC SODIUM
     Indication: ARTHRALGIA
     Dosage: UNK, DAILY
     Route: 048
     Dates: start: 2016, end: 2016
  4. RHINOCORT [BUDESONIDE] [Concomitant]
     Indication: RHINITIS ALLERGIC
     Dosage: UNK
     Route: 045

REACTIONS (2)
  - Angioedema [Recovered/Resolved]
  - Rash generalised [Recovered/Resolved]

NARRATIVE: CASE EVENT DATE: 2016
